FAERS Safety Report 23822770 (Version 5)
Quarter: 2024Q3

REPORT INFORMATION
  Report Type: Report from Study
  Country: CA (occurrence: None)
  Receive Date: 20240506
  Receipt Date: 20240712
  Transmission Date: 20241016
  Serious: Yes (Hospitalization)
  Sender: ASTRAZENECA
  Company Number: 2024A103220

PATIENT
  Sex: Female

DRUGS (13)
  1. FASENRA [Suspect]
     Active Substance: BENRALIZUMAB
     Indication: Asthma
     Dosage: 30.0MG UNKNOWN
     Route: 058
     Dates: start: 20211028
  2. ALBUTEROL [Concomitant]
     Active Substance: ALBUTEROL
     Dosage: 100.0UG AS REQUIRED
  3. NAPROXEN [Concomitant]
     Active Substance: NAPROXEN
  4. LYRICA [Concomitant]
     Active Substance: PREGABALIN
  5. RISPIRIDONE [Concomitant]
  6. SYNTHROID [Concomitant]
     Active Substance: LEVOTHYROXINE SODIUM
  7. RABEPRAZOLE [Concomitant]
     Active Substance: RABEPRAZOLE
  8. EFFEXOR [Concomitant]
     Active Substance: VENLAFAXINE HYDROCHLORIDE
  9. AMLODIPINE [Concomitant]
     Active Substance: AMLODIPINE BESYLATE
  10. CLONAZEPMAN [Concomitant]
     Dosage: 0.5MG X1, 0.25 MG X 1 DAILY
  11. VENTOLIN [Concomitant]
     Active Substance: ALBUTEROL SULFATE
  12. BREO ELLIPTA [Concomitant]
     Active Substance: FLUTICASONE FUROATE\VILANTEROL TRIFENATATE
     Dosage: 100/25 MCG 1 INH/DAY
  13. INCRUSE ELLIPTA [Concomitant]
     Active Substance: UMECLIDINIUM BROMIDE
     Dosage: 62.5 MCG 1 INH/ D

REACTIONS (12)
  - Confusional state [Unknown]
  - Fall [Recovered/Resolved]
  - Urinary tract infection [Recovered/Resolved]
  - Chronic obstructive pulmonary disease [Recovering/Resolving]
  - Infection [Unknown]
  - Joint injury [Recovered/Resolved]
  - Limb injury [Recovered/Resolved]
  - Lower respiratory tract infection [Unknown]
  - Heart rate increased [Unknown]
  - Hypersensitivity [Unknown]
  - Dyspnoea [Not Recovered/Not Resolved]
  - Blood pressure increased [Unknown]
